FAERS Safety Report 13346404 (Version 1)
Quarter: 2017Q1

REPORT INFORMATION
  Report Type: Spontaneous
  Country: US (occurrence: US)
  Receive Date: 20170317
  Receipt Date: 20170317
  Transmission Date: 20170428
  Serious: No
  Sender: FDA-Public Use
  Company Number: US-MORTON GROVE PHARMACEUTICALS, INC.-1064355

PATIENT
  Age: 73 Year
  Sex: Female

DRUGS (4)
  1. LISINOPRIL. [Concomitant]
     Active Substance: LISINOPRIL
  2. UNNAMED PAIN MEDICATION [Concomitant]
     Active Substance: UNSPECIFIED INGREDIENT
  3. MEGESTROL ACETATE. [Suspect]
     Active Substance: MEGESTROL ACETATE
     Route: 048
     Dates: start: 20161122
  4. UNNAMED ANTI-EMETIC [Concomitant]

REACTIONS (5)
  - Dysgeusia [Recovered/Resolved]
  - Oropharyngeal discomfort [None]
  - Product quality issue [None]
  - Ovarian cancer [None]
  - Disease complication [None]

NARRATIVE: CASE EVENT DATE: 20161122
